FAERS Safety Report 6720014-6 (Version None)
Quarter: 2010Q2

REPORT INFORMATION
  Report Type: 
  Country: None (occurrence: None)
  Receive Date: 20100511
  Receipt Date: 20100505
  Transmission Date: 20101027
  Serious: Yes (Death)
  Sender: FDA-Public Use
  Company Number: US-TEVA-233740USA

PATIENT
  Sex: Female

DRUGS (4)
  1. AZILECT [Suspect]
     Indication: PARKINSON'S DISEASE
     Route: 048
     Dates: start: 20090801
  2. CYCLOBENZAPRINE [Interacting]
     Indication: NECK PAIN
  3. SINEMET [Concomitant]
  4. ROPINIROLE HYDROCHLORIDE [Concomitant]

REACTIONS (3)
  - DEATH [None]
  - DRUG INTERACTION [None]
  - HEPATIC FAILURE [None]
